FAERS Safety Report 15488578 (Version 2)
Quarter: 2018Q4

REPORT INFORMATION
  Report Type: Spontaneous
  Country: CN (occurrence: CN)
  Receive Date: 20181011
  Receipt Date: 20181018
  Transmission Date: 20190205
  Serious: Yes (Other)
  Sender: FDA-Public Use
  Company Number: CN-PFIZER INC-2018404366

PATIENT
  Age: 83 Year
  Sex: Male

DRUGS (12)
  1. GENTAMICIN. [Concomitant]
     Active Substance: GENTAMICIN
     Indication: PLEURAL EFFUSION
  2. PIPERACILLIN/TAZOBACTAM [Concomitant]
     Active Substance: PIPERACILLIN SODIUM\TAZOBACTAM SODIUM
     Indication: PLEURAL EFFUSION
  3. CEFTRIAXONE. [Concomitant]
     Active Substance: CEFTRIAXONE
     Indication: PNEUMONIA
     Dosage: UNK
  4. PIPERACILLIN/TAZOBACTAM [Concomitant]
     Active Substance: PIPERACILLIN SODIUM\TAZOBACTAM SODIUM
     Indication: PNEUMONIA
     Dosage: UNK
  5. LINEZOLID. [Suspect]
     Active Substance: LINEZOLID
     Indication: EMPYEMA
     Dosage: 600 MG, 2X/DAY
     Route: 048
  6. LINEZOLID. [Concomitant]
     Active Substance: LINEZOLID
     Indication: EMPYEMA
     Dosage: 600 MG, 2X/DAY
     Route: 042
  7. GENTAMICIN. [Concomitant]
     Active Substance: GENTAMICIN
     Indication: PNEUMONIA
     Dosage: UNK
  8. LINEZOLID. [Suspect]
     Active Substance: LINEZOLID
     Indication: PNEUMONIA
  9. CEFTRIAXONE. [Concomitant]
     Active Substance: CEFTRIAXONE
     Indication: PLEURAL EFFUSION
  10. LINEZOLID. [Concomitant]
     Active Substance: LINEZOLID
     Indication: STAPHYLOCOCCAL INFECTION
  11. BIAPENEM [Concomitant]
     Active Substance: BIAPENEM
     Indication: PNEUMONIA
     Dosage: UNK
  12. BIAPENEM [Concomitant]
     Active Substance: BIAPENEM
     Indication: PLEURAL EFFUSION

REACTIONS (3)
  - Condition aggravated [Recovering/Resolving]
  - Aplasia pure red cell [Recovered/Resolved]
  - Anaemia [Recovering/Resolving]
